FAERS Safety Report 23733517 (Version 1)
Quarter: 2024Q2

REPORT INFORMATION
  Report Type: Spontaneous
  Country: CA (occurrence: CA)
  Receive Date: 20240411
  Receipt Date: 20240411
  Transmission Date: 20240715
  Serious: Yes (Hospitalization, Other)
  Sender: FDA-Public Use
  Company Number: CA-Covis Pharma Europe B.V.-2024COV00427

PATIENT
  Age: 63 Year
  Sex: Female

DRUGS (13)
  1. ACLIDINIUM BROMIDE [Suspect]
     Active Substance: ACLIDINIUM BROMIDE
     Indication: Asthma
  2. ACLIDINIUM BROMIDE [Suspect]
     Active Substance: ACLIDINIUM BROMIDE
  3. NUCALA [Suspect]
     Active Substance: MEPOLIZUMAB
     Indication: Asthma
     Route: 042
  4. PREDNISONE [Suspect]
     Active Substance: PREDNISONE
     Indication: Asthma
  5. PREDNISONE [Suspect]
     Active Substance: PREDNISONE
  6. PREDNISONE [Suspect]
     Active Substance: PREDNISONE
  7. ALBUTEROL [Suspect]
     Active Substance: ALBUTEROL
     Indication: Asthma
  8. ALBUTEROL [Suspect]
     Active Substance: ALBUTEROL
  9. SINGULAIR [Suspect]
     Active Substance: MONTELUKAST SODIUM
     Indication: Asthma
     Route: 048
  10. SPIRONOLACTONE [Suspect]
     Active Substance: SPIRONOLACTONE
     Route: 048
  11. SPIRONOLACTONE [Suspect]
     Active Substance: SPIRONOLACTONE
  12. ZENHALE [Suspect]
     Active Substance: FORMOTEROL FUMARATE\MOMETASONE FUROATE
     Indication: Asthma
  13. LASIX [Concomitant]
     Active Substance: FUROSEMIDE

REACTIONS (11)
  - Asthma [Unknown]
  - Cardiac failure congestive [Unknown]
  - Crepitations [Unknown]
  - Drug ineffective [Unknown]
  - Dyspnoea [Unknown]
  - Emotional distress [Unknown]
  - Full blood count abnormal [Unknown]
  - Hypersensitivity pneumonitis [Unknown]
  - Loss of personal independence in daily activities [Unknown]
  - Rhonchi [Unknown]
  - Weight increased [Unknown]
